FAERS Safety Report 4528536-3 (Version None)
Quarter: 2004Q4

REPORT INFORMATION
  Report Type: 
  Country: None (occurrence: None)
  Receive Date: 20041216
  Receipt Date: 20041011
  Transmission Date: 20050328
  Serious: No
  Sender: FDA-Public Use
  Company Number: US-BRISTOL-MYERS SQUIBB COMPANY-12728234

PATIENT
  Age: 65 Year
  Sex: Female
  Weight: 105 kg

DRUGS (2)
  1. QUESTRAN [Suspect]
     Indication: POST GASTRIC SURGERY SYNDROME
     Dosage: DOSAGE FORM = SCOOP
     Route: 048
  2. ASPIRIN [Concomitant]
     Indication: ARTHRITIS

REACTIONS (1)
  - CONSTIPATION [None]
